FAERS Safety Report 19789910 (Version 1)
Quarter: 2021Q3

REPORT INFORMATION
  Report Type: Spontaneous
  Country: CA (occurrence: CA)
  Receive Date: 20210905
  Receipt Date: 20210905
  Transmission Date: 20211014
  Serious: Yes (Life-Threatening, Hospitalization, Other)
  Sender: FDA-Public Use
  Company Number: CA-TEVA-2021-CA-1948209

PATIENT
  Age: 58 Year
  Sex: Male
  Weight: 65 kg

DRUGS (4)
  1. TEVA?GABAPENTIN [Suspect]
     Active Substance: GABAPENTIN
     Indication: NECK PAIN
     Dosage: 1800 MILLIGRAM DAILY;
     Route: 048
  2. APO?HYDROMORPHONE [Suspect]
     Active Substance: HYDROMORPHONE
     Route: 048
  3. DULOXETINE. [Suspect]
     Active Substance: DULOXETINE
     Route: 065
  4. MYLAN NAPROXEN/ESOMEPRAZOLE MR MODIFIEDRELEASE TABLETS [Suspect]
     Active Substance: ESOMEPRAZOLE MAGNESIUM\NAPROXEN
     Route: 048

REACTIONS (3)
  - Fall [Unknown]
  - Vertigo [Unknown]
  - Dizziness [Unknown]
